FAERS Safety Report 4926662-8 (Version None)
Quarter: 2006Q1

REPORT INFORMATION
  Report Type: 
  Country: None (occurrence: None)
  Receive Date: 20060228
  Receipt Date: 20050518
  Transmission Date: 20060701
  Serious: No
  Sender: FDA-Public Use
  Company Number: US-GLAXOSMITHKLINE-A0559436A

PATIENT
  Age: 60 Year
  Sex: Female

DRUGS (4)
  1. LAMICTAL [Suspect]
     Indication: BIPOLAR DISORDER
     Dosage: 25MG PER DAY
     Route: 048
     Dates: start: 20050323, end: 20050518
  2. VALPROATE SODIUM [Concomitant]
     Dosage: 1000MG AT NIGHT
     Route: 065
  3. KLONOPIN [Concomitant]
     Dosage: 1MG AT NIGHT
  4. WELLBUTRIN SR [Concomitant]
     Dosage: 150MG IN THE MORNING
     Route: 048

REACTIONS (1)
  - RASH PRURITIC [None]
